FAERS Safety Report 9528406 (Version 1)
Quarter: 2013Q3

REPORT INFORMATION
  Report Type: Spontaneous
  Country: DE (occurrence: None)
  Receive Date: 20130913
  Receipt Date: 20130913
  Transmission Date: 20140515
  Serious: Yes (Hospitalization)
  Sender: FDA-Public Use
  Company Number: DE-ALKEM-000132

PATIENT
  Sex: Male

DRUGS (4)
  1. METFORMIN [Suspect]
     Indication: PRODUCT USED FOR UNKNOWN INDICATION
  2. GLIBENCLAMIDE [Suspect]
     Indication: PRODUCT USED FOR UNKNOWN INDICATION
  3. METOPROLOL (METOPROLOL) [Concomitant]
  4. ASS (ASS) [Concomitant]

REACTIONS (4)
  - Hypoglycaemia [None]
  - Diabetic nephropathy [None]
  - Blood pressure increased [None]
  - Tachycardia [None]
